FAERS Safety Report 4424284-9 (Version None)
Quarter: 2004Q3

REPORT INFORMATION
  Report Type: 
  Country: None (occurrence: None)
  Receive Date: 20040809
  Receipt Date: 20040726
  Transmission Date: 20050211
  Serious: Yes (Hospitalization)
  Sender: FDA-Public Use
  Company Number: 2004199692JP

PATIENT
  Age: 76 Year
  Sex: Male

DRUGS (12)
  1. CABERGOLINE [Suspect]
     Indication: PARKINSON'S DISEASE
     Dosage: UNK, UNK, UNK (SEE IMAGE)
     Route: 065
     Dates: start: 20031101, end: 20031218
  2. CABERGOLINE [Suspect]
     Indication: PARKINSON'S DISEASE
     Dosage: UNK, UNK, UNK (SEE IMAGE)
     Route: 065
     Dates: start: 20010101
  3. SELEGILINE HYDROCHLORIDE [Concomitant]
  4. SYMMETREL [Concomitant]
  5. DIOVAN [Concomitant]
  6. LANIRAPID (METILDIGOXIN) [Concomitant]
  7. LASIX [Concomitant]
  8. TORSEMIDE [Concomitant]
  9. PERMAX [Concomitant]
  10. AMANTADINE HCL [Concomitant]
  11. NEO DOPASTON [Concomitant]
  12. TEPRENONE [Concomitant]

REACTIONS (10)
  - CARDIAC FAILURE [None]
  - CARDIOMEGALY [None]
  - DYSPNOEA [None]
  - GASTRIC ULCER [None]
  - HAEMOPTYSIS [None]
  - INTERSTITIAL LUNG DISEASE [None]
  - LUNG INFILTRATION [None]
  - OEDEMA [None]
  - PLEURAL EFFUSION [None]
  - WHITE BLOOD CELL COUNT DECREASED [None]
